FAERS Safety Report 24410958 (Version 1)
Quarter: 2024Q4

REPORT INFORMATION
  Report Type: Report from Study
  Country: US (occurrence: US)
  Receive Date: 20241008
  Receipt Date: 20241008
  Transmission Date: 20250115
  Serious: Yes (Other)
  Sender: BAYER
  Company Number: US-BAYER-2024A111815

PATIENT
  Age: 35 Year
  Sex: Male
  Weight: 87.982 kg

DRUGS (14)
  1. ADEMPAS [Suspect]
     Active Substance: RIOCIGUAT
     Indication: Pulmonary arterial hypertension
     Dosage: UNK
     Route: 048
     Dates: start: 20240131
  2. ADEMPAS [Suspect]
     Active Substance: RIOCIGUAT
     Indication: Pulmonary arterial hypertension
     Dosage: 2.5 MG, TID
     Route: 048
  3. ADEMPAS [Suspect]
     Active Substance: RIOCIGUAT
     Indication: Pulmonary arterial hypertension
     Dosage: 2.5 MG, TID
     Route: 048
  4. UPTRAVI [Suspect]
     Active Substance: SELEXIPAG
     Dosage: 800 ?G, BID
     Dates: start: 20240802
  5. ORENITRAM [Concomitant]
     Active Substance: TREPROSTINIL
  6. VITAMINS [Concomitant]
     Active Substance: VITAMINS
  7. VITAMIN D2 [Concomitant]
     Active Substance: ERGOCALCIFEROL
  8. METHOCARBAMOL [Concomitant]
     Active Substance: METHOCARBAMOL
  9. TRULICITY [Concomitant]
     Active Substance: DULAGLUTIDE
  10. AMLODIPINE BESYLATE [Concomitant]
     Active Substance: AMLODIPINE BESYLATE
  11. VALSARTAN [Concomitant]
     Active Substance: VALSARTAN
  12. AMBRISENTAN [Concomitant]
     Active Substance: AMBRISENTAN
  13. METFORMIN HYDROCHLORIDE [Concomitant]
     Active Substance: METFORMIN HYDROCHLORIDE
  14. OMEPRAZOLE [Concomitant]
     Active Substance: OMEPRAZOLE

REACTIONS (9)
  - Gastrointestinal disorder [None]
  - Catheterisation cardiac [None]
  - Fatigue [Not Recovered/Not Resolved]
  - Dyspepsia [Not Recovered/Not Resolved]
  - Nausea [None]
  - Diarrhoea [Recovered/Resolved]
  - Flushing [None]
  - Hypotension [None]
  - Abdominal discomfort [None]

NARRATIVE: CASE EVENT DATE: 20240701
